FAERS Safety Report 4686530-6 (Version None)
Quarter: 2005Q2

REPORT INFORMATION
  Report Type: 
  Country: None (occurrence: None)
  Receive Date: 20050606
  Receipt Date: 20050520
  Transmission Date: 20051028
  Serious: Yes (Hospitalization)
  Sender: FDA-Public Use
  Company Number: US_0505117901

PATIENT
  Age: 55 Year
  Sex: Female

DRUGS (1)
  1. TERIPARATIDE [Suspect]
     Dates: end: 20050518

REACTIONS (2)
  - DIABETES INSIPIDUS [None]
  - HYPOTENSION [None]
